FAERS Safety Report 12327375 (Version 1)
Quarter: 2016Q2

REPORT INFORMATION
  Report Type: Report from Study
  Country: BR (occurrence: BR)
  Receive Date: 20160503
  Receipt Date: 20160503
  Transmission Date: 20160815
  Serious: Yes (Other)
  Sender: FDA-Public Use
  Company Number: PHHY2016BR059736

PATIENT
  Sex: Female
  Weight: 66 kg

DRUGS (5)
  1. TEGRETOL CR [Suspect]
     Active Substance: CARBAMAZEPINE
     Indication: EPILEPSY
     Dosage: 400 MG, BID
     Route: 048
  2. TEGRETOL CR [Suspect]
     Active Substance: CARBAMAZEPINE
     Indication: SEIZURE
  3. HIDANTAL [Concomitant]
     Active Substance: PHENYTOIN SODIUM
     Indication: NERVOUSNESS
  4. HIDANTAL [Concomitant]
     Active Substance: PHENYTOIN SODIUM
     Indication: STRESS
     Dosage: 2 DF (100,5 MG), BID
     Route: 048
  5. HIDANTAL [Concomitant]
     Active Substance: PHENYTOIN SODIUM
     Indication: AGGRESSION

REACTIONS (1)
  - Dengue fever [Recovering/Resolving]
